FAERS Safety Report 25044353 (Version 5)
Quarter: 2025Q2

REPORT INFORMATION
  Report Type: Report from Study
  Country: US (occurrence: US)
  Receive Date: 20250306
  Receipt Date: 20250529
  Transmission Date: 20250716
  Serious: Yes (Other)
  Sender: SUNOVION
  Company Number: US-SMPA-2025SPA001552

PATIENT

DRUGS (3)
  1. ORGOVYX [Suspect]
     Active Substance: RELUGOLIX
     Indication: Prostate cancer
     Dosage: 360 MG, SINGLE
     Route: 048
     Dates: start: 20250127, end: 20250127
  2. ORGOVYX [Suspect]
     Active Substance: RELUGOLIX
     Dosage: 120 MG, QD
     Route: 048
     Dates: start: 20250128
  3. ERLEADA [Concomitant]
     Active Substance: APALUTAMIDE
     Indication: Product used for unknown indication
     Route: 065

REACTIONS (9)
  - Neuroendocrine carcinoma [Unknown]
  - Blood pressure increased [Recovered/Resolved]
  - Ear infection [Unknown]
  - Pain [Recovering/Resolving]
  - Blood test abnormal [Unknown]
  - Alopecia [Unknown]
  - Rash [Unknown]
  - Bone pain [Not Recovered/Not Resolved]
  - Fatigue [Unknown]
